FAERS Safety Report 9203521 (Version 1)
Quarter: 2013Q2

REPORT INFORMATION
  Report Type: Spontaneous
  Country: US (occurrence: US)
  Receive Date: 20130402
  Receipt Date: 20130402
  Transmission Date: 20140414
  Serious: Yes (Other)
  Sender: FDA-Public Use
  Company Number: US-PFIZER INC-2013100943

PATIENT
  Sex: Female

DRUGS (1)
  1. CISPLATIN [Suspect]
     Indication: BLADDER CANCER
     Dosage: UNK

REACTIONS (1)
  - Renal impairment [Unknown]
